FAERS Safety Report 13090432 (Version 1)
Quarter: 2017Q1

REPORT INFORMATION
  Report Type: Spontaneous
  Country: US (occurrence: US)
  Receive Date: 20170105
  Receipt Date: 20170105
  Transmission Date: 20170428
  Serious: No
  Sender: FDA-Public Use
  Company Number: US-ENDO PHARMACEUTICALS INC.-2016-006656

PATIENT
  Sex: Male
  Weight: 75.82 kg

DRUGS (2)
  1. TESTOSTERONE GEL [Suspect]
     Active Substance: TESTOSTERONE
     Indication: HYPOGONADISM
     Route: 061
     Dates: start: 2014
  2. ALFUZOSIN HCL XR [Concomitant]
     Indication: URINARY RETENTION

REACTIONS (1)
  - Body height decreased [Not Recovered/Not Resolved]
